FAERS Safety Report 12451968 (Version 1)
Quarter: 2016Q2

REPORT INFORMATION
  Report Type: Spontaneous
  Country: IT (occurrence: IT)
  Receive Date: 20160609
  Receipt Date: 20160609
  Transmission Date: 20160815
  Serious: Yes (Hospitalization)
  Sender: FDA-Public Use
  Company Number: IT-TEVA-666291ACC

PATIENT
  Age: 59 Year
  Sex: Male

DRUGS (2)
  1. SIRDALUD - 4 MG COMPRESSE [Concomitant]
     Indication: PRODUCT USED FOR UNKNOWN INDICATION
  2. DICLOFENAC SODIUM. [Suspect]
     Active Substance: DICLOFENAC SODIUM
     Indication: NECK PAIN
     Dosage: 150 MILLIGRAM DAILY;
     Route: 048
     Dates: start: 20160521, end: 20160521

REACTIONS (4)
  - Facial bones fracture [Recovered/Resolved]
  - Anaphylactic reaction [Recovered/Resolved]
  - Presyncope [Recovered/Resolved]
  - Urticaria [Recovered/Resolved]

NARRATIVE: CASE EVENT DATE: 20160525
